FAERS Safety Report 11652143 (Version 1)
Quarter: 2015Q4

REPORT INFORMATION
  Report Type: Spontaneous
  Country: US (occurrence: None)
  Receive Date: 20151021
  Receipt Date: 20151021
  Transmission Date: 20160304
  Serious: Yes (Other)
  Sender: FDA-Public Use
  Company Number: None

PATIENT
  Age: 42 Year

DRUGS (1)
  1. PRE-PEN [Suspect]
     Active Substance: BENZYLPENICILLOYL POLYLYSINE
     Indication: ALLERGY TEST
     Dosage: PRE-PEN 6.0 E-5 M 1 PRICK AND INTRADERMAL
     Route: 023
     Dates: start: 20150515

REACTIONS (6)
  - Swollen tongue [None]
  - Throat tightness [None]
  - False negative investigation result [None]
  - Vomiting [None]
  - Pharyngeal oedema [None]
  - Nausea [None]
